FAERS Safety Report 14478213 (Version 1)
Quarter: 2018Q1

REPORT INFORMATION
  Report Type: Spontaneous
  Country: US (occurrence: US)
  Receive Date: 20180202
  Receipt Date: 20180202
  Transmission Date: 20180509
  Serious: Yes (Other)
  Sender: FDA-Public Use
  Company Number: US-CIPLA LTD.-2018US02522

PATIENT

DRUGS (9)
  1. DEXAMETHASONE. [Suspect]
     Active Substance: DEXAMETHASONE
     Dosage: 0.5 MG, DAILY
     Route: 065
  2. CALCIUM LEUCOVORIN [Suspect]
     Active Substance: LEUCOVORIN CALCIUM
     Indication: PRODUCT USED FOR UNKNOWN INDICATION
     Dosage: 200 MG/M2, UNK, ON DAYS 1-5
     Route: 065
     Dates: end: 200904
  3. FLUOROURACIL. [Suspect]
     Active Substance: FLUOROURACIL
     Indication: PRODUCT USED FOR UNKNOWN INDICATION
     Dosage: 500 MG/M2, UNK, ON DAYS 1-5
     Route: 065
     Dates: end: 200904
  4. CARBOPLATIN. [Suspect]
     Active Substance: CARBOPLATIN
     Indication: GLIOMA
     Dosage: UNK
     Route: 065
  5. VINCRISTINE [Suspect]
     Active Substance: VINCRISTINE
     Indication: GLIOMA
     Dosage: UNK
     Route: 065
     Dates: end: 200904
  6. CAPECITABINE. [Suspect]
     Active Substance: CAPECITABINE
     Indication: METASTATIC NEOPLASM
     Dosage: 1 G, BID, DAYS 1-14
     Route: 065
     Dates: start: 200708, end: 200904
  7. DEXAMETHASONE. [Suspect]
     Active Substance: DEXAMETHASONE
     Indication: PRODUCT USED FOR UNKNOWN INDICATION
     Dosage: UNK
     Route: 065
  8. CARBOPLATIN. [Suspect]
     Active Substance: CARBOPLATIN
     Dosage: 500 MG/M2, UNK, ON DAY 1
     Route: 065
     Dates: end: 200904
  9. TEMOZOLOMIDE. [Suspect]
     Active Substance: TEMOZOLOMIDE
     Indication: METASTATIC NEOPLASM
     Dosage: 200 MG, BID, DAYS 1-5
     Route: 065
     Dates: start: 200708, end: 200904

REACTIONS (3)
  - Malignant neoplasm progression [Recovered/Resolved]
  - Cushingoid [Unknown]
  - Metastatic neoplasm [Recovered/Resolved]

NARRATIVE: CASE EVENT DATE: 200608
